FAERS Safety Report 24151619 (Version 1)
Quarter: 2024Q3

REPORT INFORMATION
  Report Type: Spontaneous
  Country: US (occurrence: US)
  Receive Date: 20240730
  Receipt Date: 20240730
  Transmission Date: 20241016
  Serious: No
  Sender: PERRIGO
  Company Number: US-PERRIGO-23US014865

PATIENT
  Age: 21 Year
  Sex: Female
  Weight: 87.528 kg

DRUGS (6)
  1. LORATADINE [Suspect]
     Active Substance: LORATADINE
     Indication: Sinusitis
     Dosage: 10 MG, QD
     Route: 048
     Dates: start: 202311, end: 20231218
  2. LORATADINE [Suspect]
     Active Substance: LORATADINE
     Indication: Rhinorrhoea
     Dosage: 10 MG, SINGLE
     Route: 048
     Dates: start: 20231220, end: 20231220
  3. LORATADINE [Suspect]
     Active Substance: LORATADINE
     Indication: Cough
  4. LORATADINE [Suspect]
     Active Substance: LORATADINE
     Indication: Nasal congestion
  5. DRAMAMINE [Concomitant]
     Active Substance: DIMENHYDRINATE
     Indication: Vertigo
     Dosage: PRN
     Route: 065
     Dates: start: 2021
  6. NORETHINDRONE [Concomitant]
     Active Substance: NORETHINDRONE
     Indication: Polycystic ovarian syndrome
     Dosage: UNK
     Route: 065
     Dates: start: 2020

REACTIONS (5)
  - Drug ineffective [Unknown]
  - Expired product administered [Unknown]
  - Off label use [Unknown]
  - Wrong technique in product usage process [Unknown]
  - Wrong product administered [Unknown]

NARRATIVE: CASE EVENT DATE: 20231101
